FAERS Safety Report 9408425 (Version 1)
Quarter: 2013Q3

REPORT INFORMATION
  Report Type: Report from Study
  Country: US (occurrence: US)
  Receive Date: 20130718
  Receipt Date: 20130718
  Transmission Date: 20140515
  Serious: Yes (Hospitalization)
  Sender: FDA-Public Use
  Company Number: US-GLAXOSMITHKLINE-A1033883A

PATIENT
  Age: 77 Year
  Sex: Male
  Weight: 113.8 kg

DRUGS (2)
  1. OFATUMUMAB [Suspect]
     Indication: CHRONIC LYMPHOCYTIC LEUKAEMIA
     Route: 042
     Dates: start: 20130528
  2. LENALIDOMIDE [Suspect]
     Indication: CHRONIC LYMPHOCYTIC LEUKAEMIA
     Dosage: 10MG PER DAY
     Route: 048
     Dates: start: 20130328

REACTIONS (1)
  - Abdominal pain [Unknown]
